FAERS Safety Report 9201931 (Version 2)
Quarter: 2013Q2

REPORT INFORMATION
  Report Type: Report from Study
  Country: IE (occurrence: IE)
  Receive Date: 20130401
  Receipt Date: 20130429
  Transmission Date: 20140414
  Serious: Yes (Hospitalization, Other)
  Sender: FDA-Public Use
  Company Number: IE-ROCHE-1204288

PATIENT
  Age: 40 Year
  Sex: Female
  Weight: 69.8 kg

DRUGS (12)
  1. TRASTUZUMAB EMTANSINE [Suspect]
     Indication: BREAST CANCER METASTATIC
     Route: 042
     Dates: start: 20130311
  2. LACTULOSE [Concomitant]
     Indication: CONSTIPATION
     Route: 048
     Dates: start: 20130319, end: 20130319
  3. DULCOLAX TABLETS [Concomitant]
     Indication: CONSTIPATION
     Route: 065
     Dates: start: 20130320, end: 20130320
  4. LANSOPRAZOLE [Concomitant]
     Route: 065
     Dates: start: 20130318
  5. MOTILIUM (UNITED KINGDOM) [Concomitant]
     Indication: NAUSEA
     Route: 048
     Dates: start: 20130318, end: 20130319
  6. TRAMADOL [Concomitant]
     Route: 048
     Dates: start: 20130318
  7. MST [Concomitant]
     Route: 065
     Dates: start: 20130318, end: 20130319
  8. DIFENE [Concomitant]
     Route: 065
     Dates: start: 20130318
  9. PREGABALIN [Concomitant]
     Route: 048
     Dates: start: 20130319
  10. SENNA [Concomitant]
     Route: 048
     Dates: start: 20130320
  11. PARACETAMOL [Concomitant]
     Dosage: PRN
     Route: 048
     Dates: start: 20130318
  12. SEVREDOL [Concomitant]
     Dosage: PRN
     Route: 065
     Dates: start: 20130318, end: 20130319

REACTIONS (7)
  - Axillary pain [Not Recovered/Not Resolved]
  - Musculoskeletal chest pain [Not Recovered/Not Resolved]
  - Back pain [Not Recovered/Not Resolved]
  - Vision blurred [Recovered/Resolved]
  - White blood cell count increased [Not Recovered/Not Resolved]
  - C-reactive protein increased [Unknown]
  - Hypoaesthesia [Recovered/Resolved]
